FAERS Safety Report 8461630-3 (Version None)
Quarter: 2012Q2

REPORT INFORMATION
  Report Type: 
  Country: None (occurrence: None)
  Receive Date: 20120625
  Receipt Date: 20120615
  Transmission Date: 20120825
  Serious: Yes (Disabling, Other)
  Sender: FDA-Public Use
  Company Number: PHHY2012BR052332

PATIENT
  Sex: Female

DRUGS (2)
  1. EXELON [Suspect]
     Dosage: 4.6 MG, DAILY
     Route: 062
  2. EXELON [Suspect]
     Dosage: 4.6 MG, DAILY
     Route: 062

REACTIONS (3)
  - PARALYSIS [None]
  - CEREBROVASCULAR ACCIDENT [None]
  - HEMIPLEGIA [None]
